FAERS Safety Report 18459764 (Version 4)
Quarter: 2022Q1

REPORT INFORMATION
  Report Type: Report from Study
  Country: US (occurrence: US)
  Receive Date: 20201103
  Receipt Date: 20220126
  Transmission Date: 20220423
  Serious: Yes (Other)
  Sender: FDA-Public Use
  Company Number: US-ABBVIE-20K-163-3555425-00

PATIENT
  Sex: Male

DRUGS (5)
  1. HUMIRA [Suspect]
     Active Substance: ADALIMUMAB
     Indication: Colitis ulcerative
     Route: 058
     Dates: start: 2018, end: 2019
  2. HUMIRA [Suspect]
     Active Substance: ADALIMUMAB
     Route: 058
     Dates: start: 202010, end: 20201026
  3. HUMIRA [Suspect]
     Active Substance: ADALIMUMAB
     Indication: Colitis ulcerative
     Dosage: DAY 1
     Route: 058
     Dates: start: 20200914, end: 20200914
  4. HUMIRA [Suspect]
     Active Substance: ADALIMUMAB
     Dosage: DAY 15
     Route: 058
     Dates: start: 20200928, end: 20200928
  5. HUMIRA [Suspect]
     Active Substance: ADALIMUMAB
     Indication: Colitis ulcerative
     Route: 058
     Dates: start: 20200928

REACTIONS (11)
  - Pulmonary thrombosis [Not Recovered/Not Resolved]
  - Colectomy [Unknown]
  - Pancreatic carcinoma stage II [Unknown]
  - Fatigue [Unknown]
  - Hepatic fibrosis [Unknown]
  - Rhinorrhoea [Unknown]
  - Abnormal faeces [Recovering/Resolving]
  - Depression [Unknown]
  - Anxiety [Not Recovered/Not Resolved]
  - Diarrhoea [Recovering/Resolving]
  - Hypersensitivity [Unknown]

NARRATIVE: CASE EVENT DATE: 20190101
